FAERS Safety Report 9470778 (Version 2)
Quarter: 2015Q1

REPORT INFORMATION
  Report Type: Spontaneous
  Country: US (occurrence: US)
  Receive Date: 20130822
  Receipt Date: 20150227
  Transmission Date: 20150721
  Serious: Yes (Congenital Anomaly, Other)
  Sender: FDA-Public Use
  Company Number: US-ELI_LILLY_AND_COMPANY-US201308005424

PATIENT

DRUGS (10)
  1. PROZAC [Suspect]
     Active Substance: FLUOXETINE HYDROCHLORIDE
     Indication: PRODUCT USED FOR UNKNOWN INDICATION
     Dosage: 10 MG, QD
     Route: 064
  2. LORTAB [Concomitant]
     Active Substance: ACETAMINOPHEN\HYDROCODONE BITARTRATE
  3. BUTALBITAL [Concomitant]
     Active Substance: BUTALBITAL
     Route: 064
  4. HYDROCODONE [Concomitant]
     Active Substance: HYDROCODONE
     Route: 064
  5. KLONOPIN [Concomitant]
     Active Substance: CLONAZEPAM
     Route: 064
  6. LITHIUM [Concomitant]
     Active Substance: LITHIUM CARBONATE
     Route: 064
  7. PROPRANOLOL [Concomitant]
     Active Substance: PROPRANOLOL\PROPRANOLOL HYDROCHLORIDE
  8. TRAMADOL [Concomitant]
     Active Substance: TRAMADOL
     Route: 064
  9. AMBIEN [Concomitant]
     Active Substance: ZOLPIDEM TARTRATE
     Route: 064
  10. SAVELLA [Concomitant]
     Active Substance: MILNACIPRAN HYDROCHLORIDE
     Route: 064

REACTIONS (4)
  - Weight gain poor [Recovered/Resolved]
  - Feeding disorder [Recovered/Resolved]
  - Cleft lip and palate [Recovered/Resolved]
  - Foetal exposure during pregnancy [Recovered/Resolved]
